FAERS Safety Report 6091811-8 (Version None)
Quarter: 2009Q1

REPORT INFORMATION
  Report Type: 
  Country: None (occurrence: None)
  Receive Date: 20090225
  Receipt Date: 20080711
  Transmission Date: 20090719
  Serious: No
  Sender: FDA-Public Use
  Company Number: A0737219A

PATIENT
  Age: 65 Year
  Sex: Male

DRUGS (3)
  1. VALTREX [Suspect]
     Indication: HERPES ZOSTER
     Dosage: 1000MG THREE TIMES PER DAY
     Route: 048
     Dates: start: 20080709, end: 20080710
  2. ITRACONAZOLE [Suspect]
     Indication: HERPES ZOSTER
     Dosage: 100MG PER DAY
     Dates: start: 20080708, end: 20080709
  3. NO CONCURRENT MEDICATION [Concomitant]

REACTIONS (2)
  - DRUG INEFFECTIVE [None]
  - PAIN [None]
